FAERS Safety Report 4952891-3 (Version None)
Quarter: 2006Q1

REPORT INFORMATION
  Report Type: 
  Country: None (occurrence: None)
  Receive Date: 20060324
  Receipt Date: 20060223
  Transmission Date: 20060701
  Serious: Yes (Death, Hospitalization)
  Sender: FDA-Public Use
  Company Number: PHRM2006FR00876

PATIENT
  Age: 28 Year
  Sex: Male
  Weight: 56 kg

DRUGS (9)
  1. METHOTREXATE [Concomitant]
  2. PURINETHOL [Concomitant]
  3. GLEEVEC [Suspect]
     Indication: ACUTE LYMPHOCYTIC LEUKAEMIA
     Dosage: 600 MG DAILY
     Route: 048
     Dates: start: 20060201, end: 20060207
  4. ROCEPHIN [Suspect]
     Dates: start: 20060203, end: 20060207
  5. OFLOCET [Suspect]
     Dosage: 400 MG PER DAY
     Dates: start: 20060203, end: 20060207
  6. MOPRAL [Suspect]
     Dosage: 80 MG PER DAY
     Dates: start: 20060207, end: 20060207
  7. VFEND [Suspect]
     Dosage: 400 MG DAILY
     Dates: start: 20060203, end: 20060207
  8. VFEND [Suspect]
     Dates: start: 20051001, end: 20051001
  9. SPECIAFOLDINE [Concomitant]

REACTIONS (23)
  - AGITATION [None]
  - ALANINE AMINOTRANSFERASE INCREASED [None]
  - ANTITHROMBIN III DECREASED [None]
  - ANURIA [None]
  - ASCITES [None]
  - ASPARTATE AMINOTRANSFERASE INCREASED [None]
  - ASTERIXIS [None]
  - BLOOD ALKALINE PHOSPHATASE INCREASED [None]
  - BLOOD BILIRUBIN INCREASED [None]
  - BLOOD FIBRINOGEN INCREASED [None]
  - BLOOD LACTATE DEHYDROGENASE INCREASED [None]
  - COMA [None]
  - EPISTAXIS [None]
  - FIBRIN D DIMER INCREASED [None]
  - GAMMA-GLUTAMYLTRANSFERASE INCREASED [None]
  - HEPATITIS FULMINANT [None]
  - HEPATOMEGALY [None]
  - NEUTROPENIA [None]
  - PLEURAL EFFUSION [None]
  - PROTHROMBIN LEVEL DECREASED [None]
  - RALES [None]
  - TACHYCARDIA [None]
  - THROMBOCYTOPENIA [None]
